FAERS Safety Report 18348064 (Version 2)
Quarter: 2022Q2

REPORT INFORMATION
  Report Type: Spontaneous
  Country: BR (occurrence: BR)
  Receive Date: 20201006
  Receipt Date: 20220628
  Transmission Date: 20220721
  Serious: Yes (Hospitalization)
  Sender: FDA-Public Use
  Company Number: BR-GLAXOSMITHKLINE-BR2020AMR105034

PATIENT

DRUGS (3)
  1. NUCALA [Suspect]
     Active Substance: MEPOLIZUMAB
     Indication: Asthma
     Dosage: 100 MG, Z
     Route: 042
     Dates: start: 20190507
  2. NUCALA [Suspect]
     Active Substance: MEPOLIZUMAB
     Dosage: 100 UNK
     Dates: start: 20190910
  3. NUCALA [Suspect]
     Active Substance: MEPOLIZUMAB
     Dosage: 100 UNK
     Dates: start: 20191010

REACTIONS (5)
  - Obstructive airways disorder [Recovering/Resolving]
  - Fatigue [Recovering/Resolving]
  - Drug hypersensitivity [Unknown]
  - Drug resistance [Unknown]
  - Inappropriate schedule of product administration [Unknown]
